FAERS Safety Report 7340999-7 (Version None)
Quarter: 2011Q1

REPORT INFORMATION
  Report Type: 
  Country: None (occurrence: None)
  Receive Date: 20110309
  Receipt Date: 20110225
  Transmission Date: 20110831
  Serious: Yes (Hospitalization)
  Sender: FDA-Public Use
  Company Number: DE-ELI_LILLY_AND_COMPANY-DE201103000019

PATIENT
  Age: 71 Year
  Sex: Male

DRUGS (3)
  1. GEMCITABINE HYDROCHLORIDE [Suspect]
     Indication: NON-SMALL CELL LUNG CANCER
     Dosage: ON DAY 1 AND 8 EVERY 3 WEEKS
     Route: 042
     Dates: start: 20101207
  2. CETUXIMAB [Suspect]
     Indication: NON-SMALL CELL LUNG CANCER
     Dosage: ON DAY 1, 8 AND 15 EVEY 3 WEEKS
     Route: 042
     Dates: start: 20101207
  3. CISPLATIN [Suspect]
     Indication: NON-SMALL CELL LUNG CANCER
     Dosage: ON DAY 1 EVERY 3 WEEKS
     Route: 042
     Dates: start: 20101207

REACTIONS (1)
  - EMBOLISM ARTERIAL [None]
